FAERS Safety Report 9620882 (Version 1)
Quarter: 2013Q4

REPORT INFORMATION
  Report Type: Spontaneous
  Country: UA (occurrence: UA)
  Receive Date: 20131015
  Receipt Date: 20131015
  Transmission Date: 20140711
  Serious: Yes (Death)
  Sender: FDA-Public Use
  Company Number: UA-JNJFOC-20131005660

PATIENT
  Sex: Female

DRUGS (3)
  1. DOXORUBICIN [Suspect]
     Indication: BREAST CANCER
     Route: 040
  2. DOCETAXEL [Suspect]
     Indication: BREAST CANCER
     Route: 042
  3. LIPEGFILGRASTIM [Suspect]
     Indication: NEUTROPENIA
     Route: 058

REACTIONS (1)
  - Enterocolitis [Fatal]
